FAERS Safety Report 7676517-3 (Version None)
Quarter: 2011Q3

REPORT INFORMATION
  Report Type: 
  Country: None (occurrence: None)
  Receive Date: 20110811
  Receipt Date: 20110705
  Transmission Date: 20111222
  Serious: Yes (Hospitalization)
  Sender: FDA-Public Use
  Company Number: GB-ASTRAZENECA-2011SE40165

PATIENT
  Age: 77 Year
  Sex: Male

DRUGS (12)
  1. LISINOPRIL [Suspect]
     Indication: HYPERTENSION
     Route: 048
     Dates: start: 20090415
  2. METOPROLOL TARTRATE [Suspect]
     Indication: HYPERTENSION
     Route: 065
  3. DESONIDE [Concomitant]
  4. ROSUVASTATIN CALCIUM [Suspect]
     Indication: CORONARY ARTERY DISEASE
     Route: 048
     Dates: start: 20090420
  5. ISOSORBIDE DINITRATE [Suspect]
     Indication: HYPERTENSION
     Route: 065
  6. CLOPIDOGREL [Concomitant]
  7. OMEPRAZOLE [Concomitant]
  8. DEXTROSE [Concomitant]
  9. KETOCONAZOLE [Concomitant]
  10. NITROGLYCERIN [Concomitant]
  11. AMLODIPINE [Concomitant]
     Dates: start: 20090320
  12. ASPIRIN [Concomitant]

REACTIONS (1)
  - SYNCOPE [None]
